FAERS Safety Report 4317844-7 (Version None)
Quarter: 2004Q1

REPORT INFORMATION
  Report Type: 
  Country: None (occurrence: None)
  Receive Date: 20040316
  Receipt Date: 20040310
  Transmission Date: 20041129
  Serious: Yes (Life-Threatening, Hospitalization)
  Sender: FDA-Public Use
  Company Number: 200413071GDDC

PATIENT
  Sex: Female

DRUGS (2)
  1. LANTUS [Suspect]
     Indication: DIABETES MELLITUS
     Dosage: DOSE UNIT: UNITS
     Route: 058
     Dates: start: 20031212
  2. PROLOPA [Concomitant]
     Indication: PARKINSONISM
     Route: 048

REACTIONS (3)
  - COMA [None]
  - HYPONATRAEMIA [None]
  - PROSTRATION [None]
